FAERS Safety Report 23719538 (Version 2)
Quarter: 2024Q3

REPORT INFORMATION
  Report Type: Spontaneous
  Country: FR (occurrence: None)
  Receive Date: 20240408
  Receipt Date: 20240904
  Transmission Date: 20241016
  Serious: Yes (Death, Hospitalization, Other)
  Sender: ASTRAZENECA
  Company Number: 2024A076443

PATIENT
  Age: 67 Year
  Sex: Male
  Weight: 74 kg

DRUGS (13)
  1. ESOMEPRAZOLE [Suspect]
     Active Substance: ESOMEPRAZOLE
     Indication: Helicobacter infection
     Dosage: 20 MILLIGRAM, 2/DAY
  2. CLARITHROMYCIN [Suspect]
     Active Substance: CLARITHROMYCIN
     Indication: Helicobacter infection
     Dosage: 1 GRAM DAILY
     Route: 048
     Dates: start: 20100424, end: 20100501
  3. SIMVASTATIN [Suspect]
     Active Substance: SIMVASTATIN
     Indication: Product used for unknown indication
  4. AMOXICILLIN [Suspect]
     Active Substance: AMOXICILLIN
     Indication: Helicobacter gastritis
     Dosage: 2 GRAMS DAILY
     Dates: start: 20100424, end: 20100501
  5. ACETAMINOPHEN [Suspect]
     Active Substance: ACETAMINOPHEN
     Indication: Product used for unknown indication
     Dosage: 3 GRAM, 1/DAY
     Route: 048
  6. VERAPAMIL HYDROCHLORIDE [Suspect]
     Active Substance: VERAPAMIL HYDROCHLORIDE
     Indication: Hypertension
     Dosage: 240 MG
     Dates: start: 20100126, end: 20100507
  7. IRBESARTAN [Suspect]
     Active Substance: IRBESARTAN
     Indication: Hypertension
     Dosage: 150 MG DAILY
     Dates: start: 201002
  8. NORFLOXACIN [Suspect]
     Active Substance: NORFLOXACIN
     Indication: Product used for unknown indication
  9. SMECTA [Suspect]
     Active Substance: MONTMORILLONITE
     Indication: Product used for unknown indication
  10. COLCHICINE [Suspect]
     Active Substance: COLCHICINE
     Indication: Hyperuricaemia
     Dosage: 29 APR2010 2 TABLET/DAY THEN 1TABLET/DAY
     Dates: start: 20100423, end: 20100504
  11. COLCHICINE [Suspect]
     Active Substance: COLCHICINE
     Indication: Hyperuricaemia
     Dosage: 2 DOSAGE FORM, 1/DAY
     Dates: start: 20100429
  12. COLCHICINE [Suspect]
     Active Substance: COLCHICINE
     Indication: Hyperuricaemia
     Dosage: 1 DOSAGE FORM, 1/DAY
  13. COLCHICINE [Suspect]
     Active Substance: COLCHICINE
     Indication: Rheumatoid arthritis
     Dosage: 3 MG DAILY
     Dates: start: 201002

REACTIONS (5)
  - Neutropenia [Fatal]
  - Aspiration [Fatal]
  - Cardio-respiratory arrest [Fatal]
  - Shock [Fatal]
  - Thrombocytopenia [Fatal]

NARRATIVE: CASE EVENT DATE: 20100503
